FAERS Safety Report 18480769 (Version 1)
Quarter: 2020Q4

REPORT INFORMATION
  Report Type: Report from Study
  Country: DE (occurrence: DE)
  Receive Date: 20201109
  Receipt Date: 20201109
  Transmission Date: 20210114
  Serious: Yes (Hospitalization)
  Sender: FDA-Public Use
  Company Number: DE-MYLANLABS-2020M1093180

PATIENT
  Age: 69 Year
  Sex: Male
  Weight: 55 kg

DRUGS (31)
  1. NOVAMINSULFON [Concomitant]
     Active Substance: METAMIZOLE
     Indication: PAIN
     Dosage: 40 GTT DROPS
     Route: 048
     Dates: start: 20131030
  2. CLEXANE [Concomitant]
     Active Substance: ENOXAPARIN SODIUM
     Indication: PULMONARY EMBOLISM
     Dosage: 40 MILLIGRAM
     Route: 058
     Dates: start: 20131030, end: 20131031
  3. NOVORAPID [Concomitant]
     Active Substance: INSULIN ASPART
     Indication: DIABETES MELLITUS
     Dosage: UNK
     Route: 058
     Dates: start: 2000, end: 20131030
  4. ACTRAPID [Concomitant]
     Active Substance: INSULIN HUMAN
     Indication: DIABETES MELLITUS
     Dosage: 100 INTERNATIONAL UNIT
     Route: 058
     Dates: start: 20131101
  5. FENTANYL TRANSDERMAL SYSTEM [Concomitant]
     Active Substance: FENTANYL
     Indication: PAIN
     Dosage: 12 MICROGRAM
     Route: 062
     Dates: start: 20130830, end: 20131030
  6. CISPLATIN. [Suspect]
     Active Substance: CISPLATIN
     Indication: HER2 POSITIVE GASTRIC CANCER
     Dosage: LAST DOSE PRIOR TO EVENT: 10/OCT/2013
     Route: 042
     Dates: start: 20130917
  7. PERTUZUMAB. [Suspect]
     Active Substance: PERTUZUMAB
     Indication: HER2 POSITIVE GASTRIC CANCER
     Dosage: UNK UNK, Q3W
     Route: 042
     Dates: start: 20130917
  8. RINGER^S SOLUTION                  /06440701/ [Concomitant]
     Indication: DEHYDRATION
     Dosage: 1000 MILLILITER
     Route: 042
     Dates: start: 20131102, end: 20131102
  9. CAPECITABINE. [Suspect]
     Active Substance: CAPECITABINE
     Indication: HER2 POSITIVE GASTRIC CANCER
     Dosage: LAST DOSE OF  PRIOR TO EVENT: 24/OCT/2013
     Route: 048
     Dates: start: 20130917
  10. MORPHINE [Concomitant]
     Active Substance: MORPHINE
     Indication: PAIN
     Dosage: 10 MILLIGRAM
     Route: 042
     Dates: start: 20131113, end: 20131113
  11. PROTAPHAN [Concomitant]
     Active Substance: INSULIN HUMAN
     Indication: DIABETES MELLITUS
     Dosage: UNK
     Route: 058
     Dates: start: 2000, end: 20131030
  12. AMPHO MORONAL [Concomitant]
     Active Substance: AMPHOTERICIN B
     Indication: DRY MOUTH
     Dosage: UNK
     Route: 061
     Dates: start: 20131025
  13. KALIUMCHLORID [Concomitant]
     Active Substance: POTASSIUM CHLORIDE
     Indication: HYPOKALAEMIA
     Dosage: 20 MILLILITER
     Route: 042
     Dates: start: 20131101, end: 20131112
  14. VOMEX A [Concomitant]
     Active Substance: DIMENHYDRINATE
     Indication: NAUSEA
     Dosage: 150 MILLIGRAM
     Route: 048
     Dates: start: 20130924
  15. ATACAND [Concomitant]
     Active Substance: CANDESARTAN CILEXETIL
     Indication: HYPERTENSION
     Dosage: 6.25 MILLIGRAM
     Route: 048
     Dates: start: 1995, end: 20131030
  16. PROTAPHAN [Concomitant]
     Active Substance: INSULIN HUMAN
     Dosage: 14 INTERNATIONAL UNIT
     Route: 058
     Dates: start: 20131101
  17. ASPIRIN. [Concomitant]
     Active Substance: ASPIRIN
     Indication: CORONARY ARTERY DISEASE
     Dosage: 100 MILLIGRAM
     Route: 048
     Dates: start: 1995, end: 20131030
  18. LOPERAMIDE [Concomitant]
     Active Substance: LOPERAMIDE
     Indication: DIARRHOEA
     Dosage: 4 MILLIGRAM
     Route: 048
     Dates: start: 20130917
  19. TRASTUZUMAB. [Suspect]
     Active Substance: TRASTUZUMAB
     Indication: HER2 POSITIVE GASTRIC CANCER
     Dosage: LAST DOSE OF  PRIOR TO EVENT: 10/OCT/2013
     Route: 042
  20. TRASTUZUMAB. [Suspect]
     Active Substance: TRASTUZUMAB
     Dosage: LAST DOSE OF  PRIOR TO EVENT: 10/OCT/2013
     Route: 042
     Dates: start: 20130917
  21. CLEXANE [Concomitant]
     Active Substance: ENOXAPARIN SODIUM
     Dosage: 50 MILLIGRAM
     Route: 058
     Dates: start: 20131101
  22. KALINOR                            /00031402/ [Concomitant]
     Active Substance: POTASSIUM CHLORIDE
     Indication: HYPOKALAEMIA
     Dosage: 600 MILLIGRAM
     Route: 048
     Dates: start: 20130924
  23. RINGER^S SOLUTION                  /06440701/ [Concomitant]
     Dosage: 1000 MILLILITER, Q4D
     Route: 042
     Dates: start: 20131108, end: 20131111
  24. BIFITERAL [Concomitant]
     Active Substance: LACTULOSE
     Indication: CONSTIPATION
     Dosage: 18 MILLILITER
     Route: 048
     Dates: start: 20131111, end: 20131111
  25. NOVAMINSULFON [Concomitant]
     Active Substance: METAMIZOLE
     Dosage: 1000 MILLIGRAM
     Route: 048
     Dates: start: 20130830, end: 20131030
  26. METOCLOPRAMID                      /00041901/ [Concomitant]
     Active Substance: METOCLOPRAMIDE
     Indication: NAUSEA
     Dosage: UNK
     Route: 048
     Dates: start: 20130830
  27. FUROSEMIDE. [Concomitant]
     Active Substance: FUROSEMIDE
     Indication: OEDEMA
     Dosage: 20 MILLIGRAM
     Route: 048
     Dates: start: 20131004
  28. PANTOZOL [Concomitant]
     Active Substance: PANTOPRAZOLE SODIUM
     Indication: PROPHYLAXIS
     Dosage: 40 MILLIGRAM
     Route: 001
     Dates: start: 20130829
  29. LAXOBERAL [Concomitant]
     Active Substance: SODIUM PICOSULFATE
     Indication: CONSTIPATION
     Dosage: UNK
     Route: 048
     Dates: start: 20130917
  30. SEVREDOL [Concomitant]
     Active Substance: MORPHINE
     Indication: PAIN
     Dosage: 10 MILLIGRAM
     Route: 048
     Dates: start: 20130917
  31. ONDANSETRON [Concomitant]
     Active Substance: ONDANSETRON
     Indication: NAUSEA
     Dosage: 4 MILLIGRAM
     Route: 048
     Dates: start: 20130917

REACTIONS (2)
  - Hypernatraemia [Recovered/Resolved]
  - Pneumonia [Recovered/Resolved]

NARRATIVE: CASE EVENT DATE: 20131030
